FAERS Safety Report 25871857 (Version 1)
Quarter: 2025Q4

REPORT INFORMATION
  Report Type: Other
  Country: IR (occurrence: IR)
  Receive Date: 20251001
  Receipt Date: 20251001
  Transmission Date: 20260118
  Serious: Yes (Other)
  Sender: BRECKENRIDGE PHARMACEUTICAL, INC.
  Company Number: IR-Breckenridge Pharmaceutical, Inc.-2185759

PATIENT
  Age: 26 Year
  Sex: Female

DRUGS (1)
  1. TERIFLUNOMIDE [Suspect]
     Active Substance: TERIFLUNOMIDE
     Indication: Multiple sclerosis

REACTIONS (1)
  - Pseudoxanthoma elasticum-like syndrome [Recovered/Resolved]
